FAERS Safety Report 5441547-9 (Version None)
Quarter: 2007Q3

REPORT INFORMATION
  Report Type: 
  Country: None (occurrence: None)
  Receive Date: 20070904
  Receipt Date: 20070829
  Transmission Date: 20080115
  Serious: Yes (Other)
  Sender: FDA-Public Use
  Company Number: FR-BRISTOL-MYERS SQUIBB COMPANY-13895040

PATIENT
  Age: 61 Year
  Sex: Male

DRUGS (3)
  1. HYDREA [Suspect]
     Indication: LEUKOCYTOSIS
     Route: 048
     Dates: start: 20041215
  2. GLEEVEC [Suspect]
     Indication: CHRONIC MYELOID LEUKAEMIA
     Route: 048
     Dates: start: 20050106
  3. CYTARABINE [Suspect]
     Indication: CHRONIC MYELOID LEUKAEMIA
     Route: 042
     Dates: start: 20050120, end: 20050701

REACTIONS (1)
  - ADENOCARCINOMA [None]
